FAERS Safety Report 9237422 (Version 1)
Quarter: 2013Q2

REPORT INFORMATION
  Report Type: Report from Study
  Country: US (occurrence: US)
  Receive Date: 20130417
  Receipt Date: 20130417
  Transmission Date: 20140414
  Serious: Yes (Hospitalization)
  Sender: FDA-Public Use
  Company Number: US-US-EMD SERONO, INC.-7204826

PATIENT
  Age: 56 Year
  Sex: Female

DRUGS (3)
  1. REBIF [Suspect]
     Indication: MULTIPLE SCLEROSIS
     Route: 058
     Dates: start: 20110414, end: 201212
  2. METHIMAZOLE [Concomitant]
     Indication: BASEDOW^S DISEASE
  3. DIOVAN                             /01319601/ [Concomitant]
     Indication: HYPERTENSION
     Dates: end: 201212

REACTIONS (4)
  - Renal failure [Recovered/Resolved]
  - White blood cell count decreased [Unknown]
  - Local swelling [Recovering/Resolving]
  - Nasopharyngitis [Unknown]
